FAERS Safety Report 8652571 (Version 2)
Quarter: 2013Q1

REPORT INFORMATION
  Report Type: Spontaneous
  Country: FR (occurrence: FR)
  Receive Date: 20120706
  Receipt Date: 20130318
  Transmission Date: 20140127
  Serious: Yes (Other)
  Sender: FDA-Public Use
  Company Number: FR-ROCHE-1078814

PATIENT
  Sex: Female

DRUGS (7)
  1. ROACTEMRA [Suspect]
     Indication: JUVENILE IDIOPATHIC ARTHRITIS
     Route: 042
     Dates: start: 20101221
  2. CORTANCYL [Concomitant]
     Indication: JUVENILE IDIOPATHIC ARTHRITIS
  3. METOJECT [Concomitant]
     Indication: JUVENILE IDIOPATHIC ARTHRITIS
     Route: 058
     Dates: start: 201008
  4. SPECIAFOLDINE [Concomitant]
     Route: 065
  5. TRINORDIOL [Concomitant]
  6. METHOTREXATE [Concomitant]
     Route: 048
  7. TRINORDIOL [Concomitant]

REACTIONS (2)
  - Vasculitis [Recovered/Resolved]
  - Abdominal pain [Unknown]
